FAERS Safety Report 14879006 (Version 1)
Quarter: 2018Q2

REPORT INFORMATION
  Report Type: Spontaneous
  Country: GR (occurrence: GR)
  Receive Date: 20180511
  Receipt Date: 20180511
  Transmission Date: 20180711
  Serious: Yes (Other)
  Sender: FDA-Public Use
  Company Number: GR-ACCORD-066789

PATIENT
  Age: 82 Year
  Sex: Male

DRUGS (2)
  1. ETOPOSIDE. [Suspect]
     Active Substance: ETOPOSIDE
     Indication: PARANEOPLASTIC NEUROLOGICAL SYNDROME
     Dosage: 3 CYCLE
  2. CARBOPLATIN. [Suspect]
     Active Substance: CARBOPLATIN
     Indication: PARANEOPLASTIC NEUROLOGICAL SYNDROME
     Dosage: 3 CYCLE

REACTIONS (1)
  - Bone marrow toxicity [Unknown]
